FAERS Safety Report 10698690 (Version 1)
Quarter: 2015Q1

REPORT INFORMATION
  Report Type: Spontaneous
  Country: SA (occurrence: SA)
  Receive Date: 20150108
  Receipt Date: 20150108
  Transmission Date: 20150721
  Serious: Yes (Other)
  Sender: FDA-Public Use
  Company Number: SA-PFIZER INC-2015002421

PATIENT
  Age: 54 Year
  Sex: Female
  Weight: 61.5 kg

DRUGS (4)
  1. CRIZOTINIB [Suspect]
     Active Substance: CRIZOTINIB
     Indication: LUNG ADENOCARCINOMA
     Dosage: 250 MG, 2X/DAY
     Route: 048
     Dates: start: 201409
  2. ONDANSETRON [Concomitant]
     Active Substance: ONDANSETRON
     Indication: VOMITING
     Dosage: 4 MG, BID,AS NEEDED
     Route: 048
     Dates: start: 201409
  3. METOCLOPRAMIDE. [Concomitant]
     Active Substance: METOCLOPRAMIDE
     Indication: VOMITING
     Dosage: 20 MG, 3X/DAY
     Route: 048
     Dates: start: 201409
  4. LORAZEPAM. [Concomitant]
     Active Substance: LORAZEPAM
     Indication: INSOMNIA
     Dosage: 1 MG, BID, AS NEEDED
     Route: 048
     Dates: start: 201411

REACTIONS (2)
  - Vomiting [Recovering/Resolving]
  - Depression [Not Recovered/Not Resolved]
